FAERS Safety Report 5238580-9 (Version None)
Quarter: 2007Q1

REPORT INFORMATION
  Report Type: 
  Country: None (occurrence: None)
  Receive Date: 20070215
  Receipt Date: 20070212
  Transmission Date: 20070707
  Serious: Yes (Other)
  Sender: FDA-Public Use
  Company Number: US-BRISTOL-MYERS SQUIBB COMPANY-13676705

PATIENT
  Sex: Female

DRUGS (2)
  1. COUMADIN [Suspect]
  2. HEPARIN [Suspect]

REACTIONS (1)
  - COAGULOPATHY [None]
